FAERS Safety Report 25237562 (Version 1)
Quarter: 2025Q2

REPORT INFORMATION
  Report Type: Spontaneous
  Country: JP (occurrence: JP)
  Receive Date: 20250425
  Receipt Date: 20250425
  Transmission Date: 20250716
  Serious: Yes (Hospitalization)
  Sender: IDORSIA PHARMACEUTICALS
  Company Number: JP-IDORSIA-009919-2025-JP

PATIENT
  Age: 23 Year
  Sex: Female

DRUGS (1)
  1. QUVIVIQ [Suspect]
     Active Substance: DARIDOREXANT
     Indication: Insomnia
     Dosage: 50 MG, QD
     Route: 048
     Dates: start: 20250327, end: 20250402

REACTIONS (3)
  - Psychotic disorder [Unknown]
  - Nightmare [Recovering/Resolving]
  - Discontinued product administered [Unknown]

NARRATIVE: CASE EVENT DATE: 20250327
